FAERS Safety Report 14162976 (Version 1)
Quarter: 2017Q4

REPORT INFORMATION
  Report Type: Spontaneous
  Country: FR (occurrence: FR)
  Receive Date: 20171106
  Receipt Date: 20171106
  Transmission Date: 20180321
  Serious: Yes (Other)
  Sender: FDA-Public Use
  Company Number: FR-PFIZER INC-2017470418

PATIENT
  Age: 46 Year
  Sex: Female

DRUGS (4)
  1. EPITOMAX [Suspect]
     Active Substance: TOPIRAMATE
     Indication: MIGRAINE WITH AURA
     Dosage: UNK
     Route: 048
     Dates: start: 201708
  2. PARACETAMOL [Concomitant]
     Active Substance: ACETAMINOPHEN
     Dosage: UNK
  3. SPIFEN [Concomitant]
     Active Substance: IBUPROFEN
     Dosage: UNK
  4. RELPAX [Suspect]
     Active Substance: ELETRIPTAN HYDROBROMIDE
     Indication: MIGRAINE WITH AURA
     Dosage: 10-30 TABLETS MONTHLY; LONG STANDING MEDICATION
     Route: 048

REACTIONS (5)
  - Trismus [Recovering/Resolving]
  - Face oedema [Unknown]
  - Intentional product misuse [Unknown]
  - Migraine [Unknown]
  - Condition aggravated [Unknown]

NARRATIVE: CASE EVENT DATE: 201708
